FAERS Safety Report 10366703 (Version 1)
Quarter: 2014Q3

REPORT INFORMATION
  Report Type: Spontaneous
  Country: FR (occurrence: FR)
  Receive Date: 20140806
  Receipt Date: 20140806
  Transmission Date: 20150326
  Serious: Yes (Hospitalization, Other)
  Sender: FDA-Public Use
  Company Number: FR-PFIZER INC-2014214297

PATIENT
  Age: 4 Year
  Sex: Female

DRUGS (2)
  1. CLINDAMYCIN [Suspect]
     Active Substance: CLINDAMYCIN\CLINDAMYCIN PHOSPHATE
     Indication: PURULENT PERICARDITIS
     Dosage: 680 G, 1X/DAY
     Route: 042
     Dates: start: 20140604, end: 20140626
  2. BRISTOPEN [Suspect]
     Active Substance: OXACILLIN SODIUM
     Indication: PURULENT PERICARDITIS
     Dosage: 3 G, 1X/DAY
     Route: 042
     Dates: start: 20140604

REACTIONS (5)
  - Oedema [Unknown]
  - Pyrexia [Recovered/Resolved]
  - Hepatocellular injury [Recovering/Resolving]
  - Rash [Recovered/Resolved]
  - Thrombocytopenia [Recovered/Resolved]

NARRATIVE: CASE EVENT DATE: 20140624
